FAERS Safety Report 5631764-7 (Version None)
Quarter: 2008Q1

REPORT INFORMATION
  Report Type: 
  Country: None (occurrence: None)
  Receive Date: 20080219
  Receipt Date: 20080219
  Transmission Date: 20080703
  Serious: Yes (Hospitalization)
  Sender: FDA-Public Use
  Company Number: None

PATIENT
  Sex: Male
  Weight: 127.1 kg

DRUGS (2)
  1. CYTARABINE [Suspect]
     Dosage: 1820 MG
     Dates: end: 20041218
  2. DAUNORUBICIN HCL [Suspect]
     Dosage: 360 MG

REACTIONS (2)
  - LUNG INFILTRATION [None]
  - PNEUMONITIS [None]
